FAERS Safety Report 7911154-4 (Version None)
Quarter: 2011Q4

REPORT INFORMATION
  Report Type: 
  Country: None (occurrence: None)
  Receive Date: 20111114
  Receipt Date: 20111102
  Transmission Date: 20120403
  Serious: Yes (Other)
  Sender: FDA-Public Use
  Company Number: CA-JNJFOC-20111103267

PATIENT
  Sex: Female
  Weight: 50.9 kg

DRUGS (7)
  1. REMICADE [Suspect]
     Indication: CROHN'S DISEASE
     Route: 042
     Dates: start: 20110405
  2. IMURAN [Concomitant]
  3. PANTOPRAZOLE SODIUM [Concomitant]
  4. ATIVAN [Concomitant]
  5. MESASAL [Concomitant]
  6. CODEINE SUL TAB [Concomitant]
  7. MICRONOR [Concomitant]

REACTIONS (1)
  - BREAST MASS [None]
